FAERS Safety Report 5477094-8 (Version None)
Quarter: 2007Q4

REPORT INFORMATION
  Report Type: 
  Country: None (occurrence: None)
  Receive Date: 20071003
  Receipt Date: 20071003
  Transmission Date: 20080405
  Serious: Yes (Other)
  Sender: FDA-Public Use
  Company Number: None

PATIENT
  Age: 42 Year
  Sex: Male
  Weight: 85.2762 kg

DRUGS (1)
  1. BOTOX [Suspect]
     Indication: SKIN COSMETIC PROCEDURE
     Dosage: 24 UNITS ONCE
     Dates: start: 20070720, end: 20070720

REACTIONS (14)
  - ANXIETY [None]
  - DEPRESSION [None]
  - DISCOMFORT [None]
  - DRY EYE [None]
  - DRY MOUTH [None]
  - HEADACHE [None]
  - HYPERACUSIS [None]
  - IMPAIRED WORK ABILITY [None]
  - MENIERE'S DISEASE [None]
  - MUSCULOSKELETAL DISCOMFORT [None]
  - SENSATION OF PRESSURE [None]
  - STRESS [None]
  - TINNITUS [None]
  - WEIGHT DECREASED [None]
